FAERS Safety Report 19062049 (Version 1)
Quarter: 2021Q1

REPORT INFORMATION
  Report Type: Spontaneous
  Country: FR (occurrence: FR)
  Receive Date: 20210326
  Receipt Date: 20210326
  Transmission Date: 20210420
  Serious: Yes (Hospitalization, Other)
  Sender: FDA-Public Use
  Company Number: FR-SA-2021SA099138

PATIENT
  Age: 66 Year
  Sex: Female
  Weight: 84 kg

DRUGS (11)
  1. BISOPROLOL FUMARATE. [Concomitant]
     Active Substance: BISOPROLOL FUMARATE
  2. HYDROXYZINE [Concomitant]
     Active Substance: HYDROXYZINE HYDROCHLORIDE
     Dosage: 50 MG
  3. RIFADINE [Suspect]
     Active Substance: RIFAMPIN
     Indication: INFECTION PROPHYLAXIS
     Dosage: 900 MG, QD
     Route: 048
     Dates: start: 20210205, end: 20210221
  4. LASILIX [FUROSEMIDE] [Concomitant]
     Active Substance: FUROSEMIDE
  5. LANZOR [Concomitant]
     Active Substance: LANSOPRAZOLE
  6. CORTANCYL [Concomitant]
     Active Substance: PREDNISONE
  7. FLECTORIN [Concomitant]
  8. COVERSYL [PERINDOPRIL ARGININE] [Concomitant]
     Active Substance: PERINDOPRIL ARGININE
     Dosage: DRUG DOSAGE NUMBER 1
  9. UVEDOSE [Concomitant]
     Active Substance: CHOLECALCIFEROL
     Dosage: DRUG DOSAGE NUMBER_1
     Route: 048
  10. ZAMUDOL [Concomitant]
     Active Substance: TRAMADOL HYDROCHLORIDE
  11. OLUMIANT [Concomitant]
     Active Substance: BARICITINIB
     Dates: end: 20210121

REACTIONS (1)
  - Autoimmune haemolytic anaemia [Recovering/Resolving]

NARRATIVE: CASE EVENT DATE: 20210215
